FAERS Safety Report 4713739-5 (Version None)
Quarter: 2005Q3

REPORT INFORMATION
  Report Type: 
  Country: None (occurrence: None)
  Receive Date: 20050712
  Receipt Date: 20050627
  Transmission Date: 20060218
  Serious: Yes (Hospitalization, Other)
  Sender: FDA-Public Use
  Company Number: US-2005-011752

PATIENT
  Age: 41 Year
  Sex: Female
  Weight: 71 kg

DRUGS (3)
  1. CAMPATH [Suspect]
     Indication: RENAL TRANSPLANT
  2. THYMOGLOBULINE  /NET/(ANTITHYMOCYTE IMMUNOGLOBULIN (RABBIT)) [Suspect]
     Indication: TRANSPLANT REJECTION
     Dosage: 100 MG, 1X/DAY
     Dates: start: 20040217, end: 20040217
  3. CORTICOSTEROIDS [Concomitant]

REACTIONS (5)
  - CYTOMEGALOVIRUS INFECTION [None]
  - HAEMOLYTIC ANAEMIA [None]
  - RASH [None]
  - SOFT TISSUE INFECTION [None]
  - TRANSPLANT FAILURE [None]
